FAERS Safety Report 8486457-8 (Version None)
Quarter: 2012Q3

REPORT INFORMATION
  Report Type: 
  Country: None (occurrence: None)
  Receive Date: 20120703
  Receipt Date: 20120628
  Transmission Date: 20120928
  Serious: Yes (Other)
  Sender: FDA-Public Use
  Company Number: US-PFIZER INC-2012130889

PATIENT
  Sex: Male
  Weight: 64 kg

DRUGS (8)
  1. OXALIPLATIN [Suspect]
     Indication: COLON CANCER
     Dosage: UNK
     Dates: start: 20110601, end: 20120101
  2. LIPITOR [Concomitant]
     Dosage: 10 MG, DAILY
  3. GABAPENTIN [Suspect]
     Indication: NEUROPATHY PERIPHERAL
     Dosage: 100 MG, 3X/DAY
     Dates: start: 20110601
  4. GABAPENTIN [Suspect]
     Dosage: 2 TABLETS OF 100MG THREE TIMES A DAY
     Dates: start: 20120101, end: 20120601
  5. LYRICA [Suspect]
     Indication: NEUROPATHY PERIPHERAL
     Dosage: 50 MG, 3X/DAY
     Dates: start: 20120627
  6. OMEPRAZOLE [Concomitant]
     Indication: FLATULENCE
     Dosage: 20 MG, DAILY
  7. LEUCOVORIN CALCIUM [Concomitant]
     Indication: COLON CANCER
     Dosage: UNK
     Dates: start: 20110601
  8. ADRUCIL [Suspect]
     Indication: NEOPLASM MALIGNANT
     Dosage: UNK

REACTIONS (7)
  - DIARRHOEA [None]
  - ACTIVITIES OF DAILY LIVING IMPAIRED [None]
  - HYPOAESTHESIA ORAL [None]
  - HYPOAESTHESIA [None]
  - LIP SWELLING [None]
  - NEUROPATHY PERIPHERAL [None]
  - DRUG INEFFECTIVE [None]
